FAERS Safety Report 15616571 (Version 2)
Quarter: 2019Q1

REPORT INFORMATION
  Report Type: Report from Study
  Country: US (occurrence: US)
  Receive Date: 20181114
  Receipt Date: 20190116
  Transmission Date: 20190417
  Serious: Yes (Other)
  Sender: FDA-Public Use
  Company Number: PHEH2018US047572

PATIENT
  Sex: Female

DRUGS (1)
  1. TEGRETOL [Suspect]
     Active Substance: CARBAMAZEPINE
     Indication: PRODUCT USED FOR UNKNOWN INDICATION
     Dosage: UNK
     Route: 065

REACTIONS (7)
  - Infection [Unknown]
  - Cough [Unknown]
  - Pain [Unknown]
  - Blood pressure abnormal [Recovering/Resolving]
  - Spinal fracture [Unknown]
  - Hypersensitivity [Unknown]
  - Drug dependence [Unknown]
